FAERS Safety Report 25010006 (Version 3)
Quarter: 2025Q2

REPORT INFORMATION
  Report Type: Report from Study
  Country: CO (occurrence: CO)
  Receive Date: 20250225
  Receipt Date: 20250404
  Transmission Date: 20250716
  Serious: Yes (Hospitalization, Other)
  Sender: UCB
  Company Number: CO-UCBSA-2025010396

PATIENT
  Age: 41 Year
  Sex: Female

DRUGS (7)
  1. BRIVARACETAM [Suspect]
     Active Substance: BRIVARACETAM
     Indication: Epilepsy
     Dosage: 100 MILLIGRAMS, 1 PER 12 HOURS
     Route: 048
     Dates: start: 20200713
  2. BRIVARACETAM [Suspect]
     Active Substance: BRIVARACETAM
     Route: 048
     Dates: start: 20241216, end: 20250303
  3. BRIVARACETAM [Suspect]
     Active Substance: BRIVARACETAM
     Dates: start: 20250317
  4. BRIVARACETAM [Suspect]
     Active Substance: BRIVARACETAM
     Indication: Product used for unknown indication
     Route: 047
     Dates: start: 20250307
  5. OXCARBAZEPINE [Concomitant]
     Active Substance: OXCARBAZEPINE
     Indication: Product used for unknown indication
     Dosage: 300 MG(AM)-600 MG (PM)
     Dates: end: 20250315
  6. CLONAZEPAM [Concomitant]
     Active Substance: CLONAZEPAM
     Indication: Product used for unknown indication
     Dosage: 2 MILLIGRAM, ONCE DAILY (QD)
  7. CLOBAZAM [Concomitant]
     Active Substance: CLOBAZAM
     Indication: Product used for unknown indication
     Dosage: 20 MILLIGRAM, ONCE DAILY (QD)

REACTIONS (16)
  - Seizure [Not Recovered/Not Resolved]
  - Blood pressure increased [Not Recovered/Not Resolved]
  - Fall [Unknown]
  - Vomiting [Not Recovered/Not Resolved]
  - Contusion [Unknown]
  - Abdominal discomfort [Not Recovered/Not Resolved]
  - Nervousness [Not Recovered/Not Resolved]
  - Feeling of despair [Not Recovered/Not Resolved]
  - Psychomotor hyperactivity [Not Recovered/Not Resolved]
  - Diarrhoea [Unknown]
  - Electrolyte imbalance [Unknown]
  - Malnutrition [Unknown]
  - Product use issue [Unknown]
  - Therapy interrupted [Unknown]
  - Product substitution issue [Unknown]
  - Product dispensing issue [Unknown]

NARRATIVE: CASE EVENT DATE: 20241216
